FAERS Safety Report 16590176 (Version 3)
Quarter: 2019Q3

REPORT INFORMATION
  Report Type: Spontaneous
  Country: FR (occurrence: FR)
  Receive Date: 20190718
  Receipt Date: 20190910
  Transmission Date: 20191004
  Serious: Yes (Life-Threatening, Hospitalization, Other)
  Sender: FDA-Public Use
  Company Number: FR-FERRINGPH-2019FE04196

PATIENT
  Age: 30 Year
  Sex: Female
  Weight: 53 kg

DRUGS (9)
  1. PARACETAMOL PANPHARMA [Concomitant]
     Active Substance: ACETAMINOPHEN
     Dosage: 100 ML, UNK
     Dates: start: 20190323
  2. ESOMEPRAZOLE ARROW [Concomitant]
     Active Substance: ESOMEPRAZOLE MAGNESIUM
     Dosage: UNK
     Dates: start: 20190323
  3. PHLOROGLUCINOL ARROW [Concomitant]
     Active Substance: PHLOROGLUCINOL
     Dosage: UNK
     Dates: start: 20190323, end: 20190401
  4. SODIUM CHLORIDE. [Concomitant]
     Active Substance: SODIUM CHLORIDE
     Dosage: 1 L, UNK
     Dates: start: 20190323
  5. PROPESS [Suspect]
     Active Substance: DINOPROSTONE
     Indication: INDUCTION OF CERVIX RIPENING
     Dosage: 1 DF, DAILY
     Route: 067
     Dates: start: 20190320, end: 20190322
  6. ONDANSETRON. [Concomitant]
     Active Substance: ONDANSETRON
     Dosage: WITH SODIUM CHLORIDE 0.9% 50 ML
     Dates: start: 20190323
  7. PROFENID [Concomitant]
     Active Substance: KETOPROFEN
     Dosage: WITH SODIUM CHLORIDE 0.9% 100 ML
     Dates: start: 20190323, end: 20190325
  8. CONTRAMAL [Concomitant]
     Active Substance: TRAMADOL HYDROCHLORIDE
     Dosage: 2 ML WITH SODIUM CHLORIDE 0.9% 50 ML
     Dates: start: 20190323
  9. DOLIPRANE [Concomitant]
     Active Substance: ACETAMINOPHEN
     Dosage: UNK
     Dates: start: 20190323, end: 20190401

REACTIONS (3)
  - Off label use [Recovered/Resolved]
  - Prescribed overdose [Recovered/Resolved]
  - Streptococcal sepsis [Recovered/Resolved with Sequelae]

NARRATIVE: CASE EVENT DATE: 20190320
